FAERS Safety Report 19625763 (Version 1)
Quarter: 2021Q3

REPORT INFORMATION
  Report Type: Spontaneous
  Country: US (occurrence: US)
  Receive Date: 20210728
  Receipt Date: 20210728
  Transmission Date: 20211014
  Serious: Yes (Hospitalization)
  Sender: FDA-Public Use
  Company Number: None

PATIENT
  Age: 13 Year
  Sex: Female
  Weight: 93 kg

DRUGS (1)
  1. MULTIHANCE [Suspect]
     Active Substance: GADOBENATE DIMEGLUMINE
     Indication: MAGNETIC RESONANCE IMAGING
     Dosage: ?          OTHER FREQUENCY:ONCE;?
     Route: 040
     Dates: start: 20210725, end: 20210725

REACTIONS (8)
  - Pharyngeal swelling [None]
  - Wheezing [None]
  - Dysphonia [None]
  - Dyspnoea [None]
  - Swelling face [None]
  - Sneezing [None]
  - Post procedural complication [None]
  - Ocular discomfort [None]

NARRATIVE: CASE EVENT DATE: 20210725
